FAERS Safety Report 5242354-2 (Version None)
Quarter: 2007Q1

REPORT INFORMATION
  Report Type: 
  Country: None (occurrence: None)
  Receive Date: 20070221
  Receipt Date: 20070208
  Transmission Date: 20070707
  Serious: Yes (Congenital Anomaly)
  Sender: FDA-Public Use
  Company Number: US-KINGPHARMUSA00001-K200700140

PATIENT

DRUGS (1)
  1. ALTACE [Suspect]
     Dosage: 5 MG, UNK
     Route: 050
     Dates: start: 20041015

REACTIONS (2)
  - HOLOPROSENCEPHALY [None]
  - TRANSMISSION OF DRUG VIA SEMEN [None]
